FAERS Safety Report 9668913 (Version 3)
Quarter: 2013Q4

REPORT INFORMATION
  Report Type: Spontaneous
  Country: PT (occurrence: PT)
  Receive Date: 20131105
  Receipt Date: 20131121
  Transmission Date: 20140711
  Serious: Yes (Other)
  Sender: FDA-Public Use
  Company Number: PT-VERTEX PHARMACEUTICALS INC-2013-010849

PATIENT
  Age: 58 Year
  Sex: Male
  Weight: 78 kg

DRUGS (4)
  1. INCIVO [Suspect]
     Indication: HEPATITIS C
     Dosage: 2250 MG, QD
     Route: 048
  2. INCIVO [Suspect]
     Dosage: 1200 MG, QD
     Route: 048
     Dates: start: 20130927, end: 20131112
  3. PEGYLATED INTERFERON [Concomitant]
     Indication: HEPATITIS C
     Dosage: 180 ?G, QW
     Route: 058
     Dates: start: 20130927
  4. RIBAVIRIN [Concomitant]
     Indication: HEPATITIS C
     Dosage: 600 MG, QD
     Route: 048
     Dates: start: 20130927

REACTIONS (3)
  - Renal disorder [Not Recovered/Not Resolved]
  - Renal impairment [Not Recovered/Not Resolved]
  - Off label use [Unknown]
